FAERS Safety Report 25412545 (Version 2)
Quarter: 2025Q2

REPORT INFORMATION
  Report Type: Spontaneous
  Country: US (occurrence: US)
  Receive Date: 20250609
  Receipt Date: 20250623
  Transmission Date: 20250717
  Serious: No
  Sender: ALKERMES
  Company Number: US-ALKERMES INC.-ALK-2025-001489

PATIENT
  Sex: Male
  Weight: 77.098 kg

DRUGS (3)
  1. VIVITROL [Suspect]
     Active Substance: NALTREXONE
     Indication: Alcoholism
     Route: 030
     Dates: start: 20250207, end: 20250530
  2. AMLODIPINE [Concomitant]
     Active Substance: AMLODIPINE BESYLATE
     Indication: Product used for unknown indication
     Route: 065
  3. TESTOSTERONE [Concomitant]
     Active Substance: TESTOSTERONE
     Indication: Product used for unknown indication
     Route: 065

REACTIONS (3)
  - Injection site pain [Recovered/Resolved]
  - Myalgia [Recovered/Resolved]
  - Sciatica [Unknown]

NARRATIVE: CASE EVENT DATE: 20250101
